FAERS Safety Report 6060823-2 (Version None)
Quarter: 2009Q1

REPORT INFORMATION
  Report Type: 
  Country: None (occurrence: None)
  Receive Date: 20090202
  Receipt Date: 20090127
  Transmission Date: 20090719
  Serious: Yes (Hospitalization, Other)
  Sender: FDA-Public Use
  Company Number: PHBS2009CH00648

PATIENT
  Age: 64 Year
  Sex: Male

DRUGS (13)
  1. CYCLOSPORINE [Suspect]
     Indication: RENAL TRANSPLANT
     Dosage: 150 MG, BID
  2. CYCLOSPORINE [Suspect]
     Dosage: 50 MG, BID
  3. MYCOPHENOLATE MOFETIL [Suspect]
     Dosage: 1000 MG, BID
  4. MYCOPHENOLATE MOFETIL [Suspect]
     Dosage: 500 MG, TID
  5. STEROIDS NOS [Suspect]
  6. PREDNISONE [Suspect]
     Dosage: 20 MG/DAY
  7. AMLODIPINE [Concomitant]
  8. AMIODARONE [Concomitant]
  9. WARFARIN [Concomitant]
  10. ESOMEPRAZOLE [Concomitant]
  11. SULFAMETHOXAZOLE AND TRIMETHOPRIM [Concomitant]
  12. PRAVASTATIN [Concomitant]
  13. CALCITRIOL [Concomitant]

REACTIONS (30)
  - ACUTE RESPIRATORY DISTRESS SYNDROME [None]
  - ADENOVIRUS INFECTION [None]
  - BLOOD CREATININE INCREASED [None]
  - BLOOD POTASSIUM INCREASED [None]
  - BLOOD SODIUM DECREASED [None]
  - BRONCHITIS BACTERIAL [None]
  - C-REACTIVE PROTEIN INCREASED [None]
  - CITROBACTER INFECTION [None]
  - COUGH [None]
  - DYSPNOEA [None]
  - DYSURIA [None]
  - FLUID OVERLOAD [None]
  - GLOMERULAR FILTRATION RATE DECREASED [None]
  - HAEMATURIA [None]
  - HAEMODIALYSIS [None]
  - HAEMOGLOBIN DECREASED [None]
  - KIDNEY FIBROSIS [None]
  - KIDNEY TRANSPLANT REJECTION [None]
  - MESANGIOPROLIFERATIVE GLOMERULONEPHRITIS [None]
  - NEPHROPATHY TOXIC [None]
  - OLIGURIA [None]
  - PROTEINURIA [None]
  - PYREXIA [None]
  - RENAL FAILURE ACUTE [None]
  - RENAL IMPAIRMENT [None]
  - RENAL TUBULAR ATROPHY [None]
  - RENAL TUBULAR NECROSIS [None]
  - RENAL VESSEL DISORDER [None]
  - TUBULOINTERSTITIAL NEPHRITIS [None]
  - URINARY TRACT INFECTION BACTERIAL [None]
